FAERS Safety Report 15082773 (Version 1)
Quarter: 2018Q2

REPORT INFORMATION
  Report Type: Spontaneous
  Country: US (occurrence: US)
  Receive Date: 20180628
  Receipt Date: 20180628
  Transmission Date: 20180711
  Serious: No
  Sender: FDA-Public Use
  Company Number: US-MERZ NORTH AMERICA, INC.-18MRZ-00331

PATIENT
  Age: 55 Year
  Sex: Female

DRUGS (1)
  1. XEOMIN [Suspect]
     Active Substance: INCOBOTULINUMTOXINA
     Indication: PRODUCT USED FOR UNKNOWN INDICATION
     Dosage: UNKNOWN
     Route: 065
     Dates: start: 20170117, end: 20170117

REACTIONS (3)
  - Nausea [Unknown]
  - Migraine [Unknown]
  - Gastroenteritis viral [Unknown]

NARRATIVE: CASE EVENT DATE: 20170117
